FAERS Safety Report 7206046-2 (Version None)
Quarter: 2010Q4

REPORT INFORMATION
  Report Type: 
  Country: None (occurrence: None)
  Receive Date: 20101229
  Receipt Date: 20101229
  Transmission Date: 20110411
  Serious: Yes (Life-Threatening, Hospitalization)
  Sender: FDA-Public Use
  Company Number: None

PATIENT
  Sex: Female
  Weight: 59.4212 kg

DRUGS (1)
  1. RECLAST [Suspect]

REACTIONS (6)
  - BLOOD GLUCOSE INCREASED [None]
  - BLOOD PRESSURE INCREASED [None]
  - DYSPNOEA [None]
  - EAR PAIN [None]
  - HAEMOGLOBIN DECREASED [None]
  - WEIGHT INCREASED [None]
